FAERS Safety Report 7562328-6 (Version None)
Quarter: 2011Q2

REPORT INFORMATION
  Report Type: 
  Country: None (occurrence: None)
  Receive Date: 20110620
  Receipt Date: 20110620
  Transmission Date: 20111010
  Serious: Yes (Other)
  Sender: FDA-Public Use
  Company Number: None

PATIENT
  Age: 57 Year
  Sex: Female
  Weight: 81.1939 kg

DRUGS (1)
  1. LOTREL [Suspect]
     Dosage: 5-20 MG 1 PO DAILY
     Route: 048
     Dates: start: 20100615

REACTIONS (3)
  - CONSTIPATION [None]
  - NAUSEA [None]
  - DIZZINESS [None]
